FAERS Safety Report 8482918-6 (Version None)
Quarter: 2012Q3

REPORT INFORMATION
  Report Type: 
  Country: None (occurrence: None)
  Receive Date: 20120702
  Receipt Date: 20120621
  Transmission Date: 20120928
  Serious: Yes (Other)
  Sender: FDA-Public Use
  Company Number: US-ELI_LILLY_AND_COMPANY-US201103000529

PATIENT
  Sex: Female

DRUGS (6)
  1. FORTEO [Suspect]
     Indication: OSTEOPOROSIS
     Dosage: 20 UG, DAILY (1/D)
     Dates: start: 20100101
  2. FORTEO [Suspect]
     Dosage: 20 UG, QD
  3. FORTEO [Suspect]
     Dosage: 20 UG, DAILY (1/D)
  4. FORTEO [Suspect]
     Dosage: 20 UG, QD
  5. FORTEO [Suspect]
  6. FORTEO [Suspect]
     Dosage: 20 UG, QD

REACTIONS (10)
  - SHOULDER ARTHROPLASTY [None]
  - TOOTH INFECTION [None]
  - MIGRAINE [None]
  - SINUSITIS [None]
  - DIZZINESS [None]
  - INJECTION SITE HAEMATOMA [None]
  - SINUS DISORDER [None]
  - MUSCULAR WEAKNESS [None]
  - VERTIGO [None]
  - ARTHRITIS [None]
